FAERS Safety Report 24540033 (Version 1)
Quarter: 2024Q4

REPORT INFORMATION
  Report Type: Spontaneous
  Country: US (occurrence: None)
  Receive Date: 20241022
  Receipt Date: 20241022
  Transmission Date: 20250114
  Serious: Yes (Hospitalization)
  Sender: Public
  Company Number: None

PATIENT
  Age: 67 Year
  Sex: Female

DRUGS (1)
  1. RYBELSUS [Suspect]
     Active Substance: SEMAGLUTIDE
     Indication: Type 2 diabetes mellitus
     Dates: start: 20231123, end: 20241020

REACTIONS (3)
  - Gastrointestinal disorder [None]
  - Eating disorder [None]
  - Adverse drug reaction [None]

NARRATIVE: CASE EVENT DATE: 20241002
